FAERS Safety Report 6909544-1 (Version None)
Quarter: 2010Q3

REPORT INFORMATION
  Report Type: 
  Country: None (occurrence: None)
  Receive Date: 20100805
  Receipt Date: 20100727
  Transmission Date: 20110219
  Serious: Yes (Hospitalization)
  Sender: FDA-Public Use
  Company Number: CA-ABBOTT-10P-028-0655991-00

PATIENT
  Sex: Female
  Weight: 86.714 kg

DRUGS (1)
  1. HUMIRA [Suspect]
     Indication: PSORIATIC ARTHROPATHY
     Route: 058
     Dates: start: 20070924

REACTIONS (8)
  - CHEST PAIN [None]
  - DYSPNOEA [None]
  - FALL [None]
  - HOSPITALISATION [None]
  - LUNG NEOPLASM [None]
  - METASTASES TO BONE [None]
  - PULMONARY MASS [None]
  - SYNCOPE [None]
